FAERS Safety Report 19904581 (Version 1)
Quarter: 2021Q4

REPORT INFORMATION
  Report Type: Report from Study
  Country: UG (occurrence: UG)
  Receive Date: 20211001
  Receipt Date: 20211001
  Transmission Date: 20220303
  Serious: Yes (Other)
  Sender: FDA-Public Use
  Company Number: UG-VIIV HEALTHCARE LIMITED-UG2021GSK203566

PATIENT
  Age: 24 Year
  Sex: Female
  Weight: 62 kg

DRUGS (4)
  1. CABOTEGRAVIR [Suspect]
     Active Substance: CABOTEGRAVIR
     Indication: Prophylaxis against HIV infection
     Dosage: UNK
     Route: 048
     Dates: start: 20190923, end: 20191024
  2. CABOTEGRAVIR [Suspect]
     Active Substance: CABOTEGRAVIR
     Dosage: UNK
     Route: 030
     Dates: start: 20191025, end: 20200506
  3. CABOTEGRAVIR [Suspect]
     Active Substance: CABOTEGRAVIR
     Dosage: UNK
     Route: 048
     Dates: start: 20191025, end: 20200525
  4. DOLUTEGRAVIR + LAMIVUDINE + TENOFOVIR DISOPROXIL FUMARATE [Concomitant]
     Indication: HIV infection
     Dosage: UNK, QD
     Route: 050
     Dates: start: 20201214, end: 20210920

REACTIONS (2)
  - Abortion spontaneous [Unknown]
  - Exposure during pregnancy [Unknown]

NARRATIVE: CASE EVENT DATE: 20210601
